FAERS Safety Report 8455548-X (Version None)
Quarter: 2012Q2

REPORT INFORMATION
  Report Type: 
  Country: None (occurrence: None)
  Receive Date: 20120621
  Receipt Date: 20120613
  Transmission Date: 20120825
  Serious: Yes (Hospitalization)
  Sender: FDA-Public Use
  Company Number: SE-PFIZER INC-2012142040

PATIENT
  Age: 31 Year
  Sex: Male

DRUGS (3)
  1. HUMIRA [Suspect]
     Indication: CROHN'S DISEASE
     Dosage: UNK
     Route: 058
     Dates: start: 20120323, end: 20120406
  2. CLINDAMYCIN HCL [Suspect]
     Indication: INFECTION
  3. IMURAN [Suspect]
     Indication: CROHN'S DISEASE

REACTIONS (3)
  - ERYTHEMA MULTIFORME [None]
  - PANCREATITIS [None]
  - HEPATITIS [None]
